FAERS Safety Report 23229722 (Version 1)
Quarter: 2023Q4

REPORT INFORMATION
  Report Type: Spontaneous
  Country: US (occurrence: None)
  Receive Date: 20231127
  Receipt Date: 20231127
  Transmission Date: 20240110
  Serious: No
  Sender: FDA-Public Use
  Company Number: US-ROCHE-3232693

PATIENT
  Age: 81 Year
  Sex: Female

DRUGS (13)
  1. LUCENTIS [Suspect]
     Active Substance: RANIBIZUMAB
     Indication: Neovascular age-related macular degeneration
     Dosage: INJECT 0.05 MG INTO THE RIGHT EYE?0.5 MG PRE-FILLED SYRINGE
     Route: 065
  2. LUCENTIS [Suspect]
     Active Substance: RANIBIZUMAB
  3. LUCENTIS [Suspect]
     Active Substance: RANIBIZUMAB
  4. LUCENTIS [Suspect]
     Active Substance: RANIBIZUMAB
     Indication: Choroidal neovascularisation
  5. LUCENTIS [Suspect]
     Active Substance: RANIBIZUMAB
  6. LUCENTIS [Suspect]
     Active Substance: RANIBIZUMAB
  7. METOPROLOL TARTRATE [Concomitant]
     Active Substance: METOPROLOL TARTRATE
  8. CHLORHEXADOL [Concomitant]
  9. LEVOTHYROXINE [Concomitant]
     Active Substance: LEVOTHYROXINE
  10. MELOXICAM [Concomitant]
     Active Substance: MELOXICAM
  11. SIMVASTATIN [Concomitant]
     Active Substance: SIMVASTATIN
  12. TEMAZEPAM [Concomitant]
     Active Substance: TEMAZEPAM
  13. TRIAMCINOLONE [Concomitant]
     Active Substance: TRIAMCINOLONE

REACTIONS (1)
  - Ocular hyperaemia [Not Recovered/Not Resolved]
